FAERS Safety Report 6672892-7 (Version None)
Quarter: 2010Q2

REPORT INFORMATION
  Report Type: 
  Country: None (occurrence: None)
  Receive Date: 20100408
  Receipt Date: 20100329
  Transmission Date: 20101027
  Serious: Yes (Other)
  Sender: FDA-Public Use
  Company Number: PHHY2010US06072

PATIENT
  Sex: Male

DRUGS (7)
  1. EXJADE [Suspect]
     Indication: CHELATION THERAPY
     Dosage: 1625 MG DAILY
     Route: 048
     Dates: start: 20091221, end: 20100114
  2. ACYCLOVIR [Concomitant]
     Dosage: 200 MG, BID
     Route: 048
  3. ERGOCALCIFEROL [Concomitant]
     Dosage: 50000 U, QW2 FOR 8 WEEKS
     Route: 048
  4. PROTEGRA [Concomitant]
     Dosage: 1 TABLET DAILY
     Route: 048
  5. AVODART [Concomitant]
     Dosage: 0.5 MG DAILY
     Route: 048
  6. NEXIUM [Concomitant]
     Dosage: 40 MG, 1 TABLET DAILY
     Route: 048
  7. CIPRO [Concomitant]

REACTIONS (13)
  - ALANINE AMINOTRANSFERASE INCREASED [None]
  - ASPARTATE AMINOTRANSFERASE INCREASED [None]
  - BLOOD ALKALINE PHOSPHATASE INCREASED [None]
  - BLOOD CREATININE INCREASED [None]
  - BLOOD GLUCOSE INCREASED [None]
  - BLOOD PRESSURE INCREASED [None]
  - HAEMOGLOBIN DECREASED [None]
  - OEDEMA [None]
  - ORCHITIS [None]
  - RASH [None]
  - RENAL DISORDER [None]
  - TESTICULAR PAIN [None]
  - TESTICULAR SWELLING [None]
